FAERS Safety Report 5480691-7 (Version None)
Quarter: 2007Q4

REPORT INFORMATION
  Report Type: 
  Country: None (occurrence: None)
  Receive Date: 20071009
  Receipt Date: 20070925
  Transmission Date: 20080405
  Serious: Yes (Other)
  Sender: FDA-Public Use
  Company Number: US-RANBAXY-2007US-07394

PATIENT

DRUGS (2)
  1. ISOTRETINOIN ORAL FAMILY [Suspect]
     Dosage: 40 MG, QD
     Route: 048
     Dates: start: 20070301, end: 20070509
  2. ISOTRETINOIN ORAL FAMILY [Suspect]
     Dosage: 20 MG, QD
     Route: 048
     Dates: start: 20070301, end: 20070508

REACTIONS (5)
  - ABORTION INDUCED [None]
  - ABORTION MISSED [None]
  - ECTOPIC PREGNANCY TERMINATION [None]
  - PREGNANCY [None]
  - VAGINAL HAEMORRHAGE [None]
